FAERS Safety Report 4669658-6 (Version None)
Quarter: 2005Q2

REPORT INFORMATION
  Report Type: 
  Country: None (occurrence: None)
  Receive Date: 20050520
  Receipt Date: 20050516
  Transmission Date: 20051028
  Serious: Yes (Other)
  Sender: FDA-Public Use
  Company Number: 05-05-0846

PATIENT
  Age: 62 Year
  Sex: Female

DRUGS (2)
  1. CLOZAPINE [Suspect]
     Indication: SCHIZOPHRENIA
     Dosage: 300-500MG QD ORAL
     Route: 048
     Dates: start: 20000801, end: 20050501
  2. CHEMOTHERAPY FOR BREAST CANCER [Concomitant]

REACTIONS (1)
  - BREAST CANCER [None]
